FAERS Safety Report 6538714-X (Version None)
Quarter: 2010Q1

REPORT INFORMATION
  Report Type: 
  Country: None (occurrence: None)
  Receive Date: 20100113
  Receipt Date: 20100113
  Transmission Date: 20100710
  Serious: Yes (Other)
  Sender: FDA-Public Use
  Company Number: None

PATIENT
  Age: 62 Year
  Sex: Male
  Weight: 72.7 kg

DRUGS (8)
  1. GABAPENTIN [Suspect]
     Indication: NEURALGIA
     Dosage: ONE 3 TIMES DAY ORAL
     Route: 048
     Dates: start: 20091125, end: 20091203
  2. MORPHINE SULFATE (AVINZA ER) [Suspect]
     Indication: NEURALGIA
     Dosage: ONE 2 TIMES DAY ORAL
     Route: 048
     Dates: start: 20091129, end: 20091203
  3. ETODOLAC [Concomitant]
  4. PRIMIDONE [Concomitant]
  5. SIMVASTATIN [Concomitant]
  6. PROPRANOLOL [Concomitant]
  7. PAROXETINE HCL [Concomitant]
  8. ASPIRIN [Concomitant]

REACTIONS (19)
  - AGITATION [None]
  - AMNESIA [None]
  - CHILLS [None]
  - CLUMSINESS [None]
  - COORDINATION ABNORMAL [None]
  - DIARRHOEA [None]
  - DIZZINESS [None]
  - DRY MOUTH [None]
  - DYSARTHRIA [None]
  - DYSURIA [None]
  - FATIGUE [None]
  - HOSTILITY [None]
  - JOINT SWELLING [None]
  - OEDEMA PERIPHERAL [None]
  - PROSTATIC OBSTRUCTION [None]
  - PRURITUS [None]
  - SOMNOLENCE [None]
  - URETHRAL OBSTRUCTION [None]
  - VISION BLURRED [None]
